FAERS Safety Report 16629178 (Version 1)
Quarter: 2019Q3

REPORT INFORMATION
  Report Type: Spontaneous
  Country: US (occurrence: US)
  Receive Date: 20190725
  Receipt Date: 20190725
  Transmission Date: 20191004
  Serious: Yes (Other)
  Sender: FDA-Public Use
  Company Number: US-009507513-1907USA011073

PATIENT
  Age: 22 Year
  Sex: Female

DRUGS (2)
  1. NEXPLANON [Suspect]
     Active Substance: ETONOGESTREL
     Indication: CONTRACEPTION
     Dosage: 68 MILLIGRAM (1 ROD) EVERY 3 YEARS
     Route: 059
     Dates: start: 20190404, end: 20190710
  2. NEXPLANON [Suspect]
     Active Substance: ETONOGESTREL
     Dosage: 68 MILLIGRAM (1 ROD) EVERY 3 YEARS
     Route: 059
     Dates: start: 20190710

REACTIONS (3)
  - Implant site pain [Recovered/Resolved]
  - Device dislocation [Recovered/Resolved]
  - Implant site vesicles [Recovered/Resolved]

NARRATIVE: CASE EVENT DATE: 20190710
